FAERS Safety Report 14402796 (Version 1)
Quarter: 2018Q1

REPORT INFORMATION
  Report Type: Spontaneous
  Country: US (occurrence: US)
  Receive Date: 20180117
  Receipt Date: 20180117
  Transmission Date: 20180509
  Serious: No
  Sender: FDA-Public Use
  Company Number: US-NOVOPROD-573567

PATIENT
  Age: 46 Year
  Sex: Female

DRUGS (4)
  1. SAXENDA [Suspect]
     Active Substance: LIRAGLUTIDE
     Dosage: 1.8 MG, UNK
     Route: 058
     Dates: start: 2017, end: 2017
  2. SAXENDA [Suspect]
     Active Substance: LIRAGLUTIDE
     Indication: WEIGHT DECREASED
     Dosage: 1.2 MG, UNK
     Route: 058
     Dates: start: 20170927
  3. SAXENDA [Suspect]
     Active Substance: LIRAGLUTIDE
     Dosage: 3 MG, UNK
     Route: 058
     Dates: start: 2017, end: 20171101
  4. SAXENDA [Suspect]
     Active Substance: LIRAGLUTIDE
     Dosage: 1.2 MG, UNK
     Route: 058
     Dates: start: 201711

REACTIONS (2)
  - Nausea [Recovered/Resolved]
  - Product use issue [Recovered/Resolved]

NARRATIVE: CASE EVENT DATE: 20171004
